FAERS Safety Report 6679973-2 (Version None)
Quarter: 2010Q2

REPORT INFORMATION
  Report Type: 
  Country: None (occurrence: None)
  Receive Date: 20100413
  Receipt Date: 20100401
  Transmission Date: 20101027
  Serious: Yes (Other)
  Sender: FDA-Public Use
  Company Number: AU-WYE-G05834010

PATIENT
  Sex: Female

DRUGS (2)
  1. PRISTIQ [Suspect]
     Indication: DEPRESSION
     Dosage: 50MG DAILY
     Route: 048
     Dates: start: 20091214
  2. PRISTIQ [Suspect]
     Indication: ANXIETY

REACTIONS (6)
  - CONVULSION [None]
  - HEADACHE [None]
  - MALAISE [None]
  - SYNCOPE [None]
  - THROMBOSIS [None]
  - VAGINAL HAEMORRHAGE [None]
